FAERS Safety Report 18156498 (Version 5)
Quarter: 2024Q1

REPORT INFORMATION
  Report Type: Spontaneous
  Country: US (occurrence: US)
  Receive Date: 20200817
  Receipt Date: 20240219
  Transmission Date: 20240410
  Serious: Yes (Other)
  Sender: FDA-Public Use
  Company Number: US-PFIZER INC-2020020721

PATIENT
  Age: 68 Year
  Sex: Female
  Weight: 49.9 kg

DRUGS (4)
  1. PREMARIN [Suspect]
     Active Substance: ESTROGENS, CONJUGATED
     Indication: Artificial menopause
     Dosage: 1.25 MG, DAILY
     Route: 048
  2. PREMARIN [Suspect]
     Active Substance: ESTROGENS, CONJUGATED
     Indication: Hormone replacement therapy
     Dosage: 1.25 MG, 1X/DAY [1.25MG, 1 TABLET BY MOUTH ONCE DAILY]
     Route: 048
  3. PREMARIN [Suspect]
     Active Substance: ESTROGENS, CONJUGATED
     Indication: Menopausal symptoms
  4. PREMARIN [Suspect]
     Active Substance: ESTROGENS, CONJUGATED
     Indication: Bone disorder

REACTIONS (4)
  - Major depression [Unknown]
  - Therapeutic response unexpected [Unknown]
  - Feeling abnormal [Unknown]
  - Fatigue [Unknown]
